FAERS Safety Report 17502301 (Version 4)
Quarter: 2022Q3

REPORT INFORMATION
  Report Type: Spontaneous
  Country: US (occurrence: US)
  Receive Date: 20200305
  Receipt Date: 20220714
  Transmission Date: 20221026
  Serious: Yes (Other)
  Sender: FDA-Public Use
  Company Number: US-PFIZER INC-2020095833

PATIENT
  Sex: Male

DRUGS (22)
  1. PROTONIX [Suspect]
     Active Substance: PANTOPRAZOLE SODIUM
     Indication: Gastrooesophageal reflux disease
     Dosage: 40 MG, ONCE-TWICE DAILY
     Dates: start: 2002, end: 2019
  2. PRILOSEC [Suspect]
     Active Substance: OMEPRAZOLE MAGNESIUM
     Indication: Gastrooesophageal reflux disease
     Dosage: 20-40 MG, 1X/DAY
     Dates: start: 2000, end: 2018
  3. PRILOSEC OTC [Suspect]
     Active Substance: OMEPRAZOLE MAGNESIUM
     Indication: Gastrooesophageal reflux disease
     Dosage: UNK
     Dates: start: 2003, end: 2018
  4. OMEPRAZOLE [Suspect]
     Active Substance: OMEPRAZOLE
     Indication: Gastrooesophageal reflux disease
     Dosage: 20-40 MG, 1X/DAY
     Dates: end: 2018
  5. PANTOPRAZOLE [Suspect]
     Active Substance: PANTOPRAZOLE
     Indication: Gastrooesophageal reflux disease
     Dosage: 8 MG (8 MG PER HOUR)
     Route: 042
     Dates: start: 2018
  6. AZITHROMYCIN [Concomitant]
     Active Substance: AZITHROMYCIN
     Indication: Infection
     Dosage: UNK
     Dates: start: 2014, end: 2019
  7. SULFAMETHOXAZOLE [Concomitant]
     Active Substance: SULFAMETHOXAZOLE
     Indication: Infection
     Dosage: UNK
     Dates: start: 2013
  8. NAPROXEN [Concomitant]
     Active Substance: NAPROXEN
     Indication: Analgesic therapy
     Dosage: UNK
     Dates: start: 2017, end: 2018
  9. MELOXICAM [Concomitant]
     Active Substance: MELOXICAM
     Indication: Analgesic therapy
     Dosage: UNK
     Dates: start: 2013
  10. FUROSEMIDE [Concomitant]
     Active Substance: FUROSEMIDE
     Indication: Fluid retention
     Dosage: UNK
     Dates: start: 2016
  11. CIPROFLOXACIN [Concomitant]
     Active Substance: CIPROFLOXACIN
     Indication: Infection
     Dosage: UNK
     Dates: start: 2014, end: 2015
  12. CIPROFLOXACIN [Concomitant]
     Active Substance: CIPROFLOXACIN
     Indication: Infection
     Dosage: UNK
     Dates: start: 2014, end: 2015
  13. AMOXICILLIN [Concomitant]
     Active Substance: AMOXICILLIN
     Indication: Infection
     Dosage: UNK
     Dates: start: 2015
  14. TOBRAMYCIN AND DEXAMETHASONE [Concomitant]
     Active Substance: DEXAMETHASONE\TOBRAMYCIN
     Indication: Infection
     Dosage: UNK
     Dates: start: 2014
  15. LEVOFLOXACIN [Concomitant]
     Active Substance: LEVOFLOXACIN
     Indication: Infection
     Dosage: UNK
     Dates: start: 2014
  16. CEFDINIR [Concomitant]
     Active Substance: CEFDINIR
     Indication: Infection
     Dosage: UNK
     Dates: start: 2019
  17. VANCOMYCIN HYDROCHLORIDE [Concomitant]
     Active Substance: VANCOMYCIN HYDROCHLORIDE
     Indication: Infection
     Dosage: UNK
     Dates: start: 2018
  18. BENZONATATE [Concomitant]
     Active Substance: BENZONATATE
     Indication: Antitussive therapy
     Dosage: UNK
     Dates: start: 2014
  19. HYDRALAZINE [Concomitant]
     Active Substance: HYDRALAZINE HYDROCHLORIDE
     Indication: Blood pressure abnormal
     Dosage: UNK
     Dates: start: 2008, end: 2019
  20. CARTIA XT [Concomitant]
     Active Substance: DILTIAZEM HYDROCHLORIDE
     Indication: Blood pressure abnormal
     Dosage: UNK
     Dates: start: 2009, end: 2019
  21. DILTIAZEM [Concomitant]
     Active Substance: DILTIAZEM
     Indication: Blood pressure abnormal
     Dosage: UNK
     Dates: start: 2009
  22. LIPITOR [Concomitant]
     Active Substance: ATORVASTATIN CALCIUM
     Indication: Blood cholesterol increased
     Dosage: UNK
     Dates: start: 2008, end: 2019

REACTIONS (2)
  - Chronic kidney disease [Unknown]
  - End stage renal disease [Unknown]
